FAERS Safety Report 18448516 (Version 1)
Quarter: 2020Q4

REPORT INFORMATION
  Report Type: Spontaneous
  Country: GB (occurrence: GB)
  Receive Date: 20201031
  Receipt Date: 20201031
  Transmission Date: 20210114
  Serious: Yes (Hospitalization)
  Sender: FDA-Public Use
  Company Number: GB-TEVA-2020-GB-1842419

PATIENT
  Age: 88 Year
  Sex: Female
  Weight: 72 kg

DRUGS (9)
  1. OMEPRAZOLE. [Suspect]
     Active Substance: OMEPRAZOLE
     Indication: GASTROOESOPHAGEAL REFLUX DISEASE
     Dosage: 20 MG
     Route: 048
  2. SOLIFENACIN SUCCINATE. [Concomitant]
     Active Substance: SOLIFENACIN SUCCINATE
  3. FOLIC ACID. [Concomitant]
     Active Substance: FOLIC ACID
  4. BISOPROLOL FUMARATE. [Concomitant]
     Active Substance: BISOPROLOL FUMARATE
  5. EPILIM [Concomitant]
     Active Substance: VALPROATE SODIUM
  6. QVAR [Concomitant]
     Active Substance: BECLOMETHASONE DIPROPIONATE
  7. PARACETAMOL COATED 90% [Concomitant]
  8. EVACAL D3 CHEWABLE [Concomitant]
  9. DOXAZOSIN MESILATE [Concomitant]
     Active Substance: DOXAZOSIN MESYLATE

REACTIONS (4)
  - Dehydration [Unknown]
  - Acute kidney injury [Unknown]
  - Malaise [Unknown]
  - Tubulointerstitial nephritis [Recovered/Resolved]
